FAERS Safety Report 15286561 (Version 4)
Quarter: 2019Q3

REPORT INFORMATION
  Report Type: Spontaneous
  Country: US (occurrence: US)
  Receive Date: 20180816
  Receipt Date: 20190712
  Transmission Date: 20191004
  Serious: No
  Sender: FDA-Public Use
  Company Number: US-ACTELION-A-NJ2018-177366

PATIENT
  Age: 83 Year
  Sex: Female
  Weight: 58.96 kg

DRUGS (3)
  1. NIFEDIPINE. [Concomitant]
     Active Substance: NIFEDIPINE
  2. WARFARIN [Concomitant]
     Active Substance: WARFARIN
  3. TRACLEER [Suspect]
     Active Substance: BOSENTAN
     Indication: PULMONARY HYPERTENSION
     Dosage: 125 MG, BID
     Route: 048

REACTIONS (16)
  - Hypoacusis [Unknown]
  - Weight increased [Unknown]
  - Pain [Unknown]
  - Dyspnoea [Unknown]
  - Feeling abnormal [Unknown]
  - Palpitations [Unknown]
  - Sinusitis [Unknown]
  - Atrial flutter [Unknown]
  - Product dose omission [Unknown]
  - Ear disorder [Unknown]
  - Chest pain [Unknown]
  - Asthenia [Unknown]
  - Nausea [Unknown]
  - Peripheral swelling [Recovered/Resolved]
  - Dyspnoea exertional [Unknown]
  - Nervousness [Unknown]

NARRATIVE: CASE EVENT DATE: 201906
